FAERS Safety Report 8382989-1 (Version None)
Quarter: 2012Q2

REPORT INFORMATION
  Report Type: 
  Country: None (occurrence: None)
  Receive Date: 20120524
  Receipt Date: 20120518
  Transmission Date: 20120825
  Serious: Yes (Other)
  Sender: FDA-Public Use
  Company Number: CA-PFIZER INC-2012121394

PATIENT

DRUGS (2)
  1. TEMSIROLIMUS [Suspect]
     Dosage: UNK
     Dates: start: 20090101
  2. SUTENT [Suspect]
     Dosage: UNK

REACTIONS (1)
  - OSTEONECROSIS [None]
